FAERS Safety Report 16924865 (Version 3)
Quarter: 2020Q1

REPORT INFORMATION
  Report Type: Spontaneous
  Country: US (occurrence: US)
  Receive Date: 20191016
  Receipt Date: 20200106
  Transmission Date: 20200409
  Serious: No
  Sender: FDA-Public Use
  Company Number: US-PFIZER INC-2019444357

PATIENT
  Age: 35 Year
  Sex: Female
  Weight: 48 kg

DRUGS (1)
  1. IBRANCE [Suspect]
     Active Substance: PALBOCICLIB
     Indication: BREAST CANCER METASTATIC
     Dosage: 125 MG, CYCLIC (DAYS 1-21 Q (EVERY) 28 DAYS)
     Route: 048
     Dates: start: 20190920

REACTIONS (10)
  - Vomiting [Unknown]
  - Red blood cell count decreased [Unknown]
  - Stomatitis [Unknown]
  - Pain [Unknown]
  - Nausea [Unknown]
  - White blood cell count decreased [Unknown]
  - Emotional disorder [Unknown]
  - Fatigue [Unknown]
  - Back pain [Unknown]
  - Alopecia [Unknown]

NARRATIVE: CASE EVENT DATE: 2019
